FAERS Safety Report 18137106 (Version 1)
Quarter: 2020Q3

REPORT INFORMATION
  Report Type: Spontaneous
  Country: US (occurrence: US)
  Receive Date: 20200812
  Receipt Date: 20200812
  Transmission Date: 20201103
  Serious: No
  Sender: FDA-Public Use
  Company Number: US-AUROBINDO-AUR-APL-2020-026741

PATIENT
  Age: 62 Year
  Sex: Female
  Weight: 71.65 kg

DRUGS (1)
  1. DORZOLAMIDE HYDROCHLORIDE+TIMOLOL MALEATE 2%/0.5% [Suspect]
     Active Substance: DORZOLAMIDE HYDROCHLORIDE\TIMOLOL MALEATE
     Indication: OCULAR HYPERTENSION
     Dosage: UNK UNK, TWO TIMES A DAY
     Route: 065
     Dates: start: 20200419

REACTIONS (5)
  - Eye swelling [Recovered/Resolved]
  - Product formulation issue [Unknown]
  - Ocular hyperaemia [Recovered/Resolved]
  - Product substitution issue [Unknown]
  - Vascular pain [Recovered/Resolved]

NARRATIVE: CASE EVENT DATE: 20200515
